FAERS Safety Report 5636717-0 (Version None)
Quarter: 2008Q1

REPORT INFORMATION
  Report Type: 
  Country: None (occurrence: None)
  Receive Date: 20080225
  Receipt Date: 20080214
  Transmission Date: 20080703
  Serious: Yes (Hospitalization)
  Sender: FDA-Public Use
  Company Number: GB-ELI_LILLY_AND_COMPANY-GB200711004216

PATIENT
  Sex: Female
  Weight: 74 kg

DRUGS (9)
  1. GEMCITABINE HCL [Suspect]
     Indication: PANCREATIC CARCINOMA METASTATIC
     Dosage: 1800 UNK, UNK
     Route: 042
     Dates: start: 20071121
  2. FENTANYL [Concomitant]
  3. HALOPERIDOL [Concomitant]
  4. OXYNORM [Concomitant]
  5. DEXAMETHASONE TAB [Concomitant]
  6. CREON [Concomitant]
  7. PROCHLORPERAZINE MALEATE [Concomitant]
     Dates: start: 20071106
  8. ONDANSETRON [Concomitant]
     Dates: start: 20071113
  9. MAXOLON [Concomitant]
     Dates: start: 20071124

REACTIONS (2)
  - BILIARY SEPSIS [None]
  - NEUTROPENIC SEPSIS [None]
